FAERS Safety Report 11573407 (Version 1)
Quarter: 2015Q3

REPORT INFORMATION
  Report Type: Report from Study
  Country: GB (occurrence: GB)
  Receive Date: 20150929
  Receipt Date: 20150929
  Transmission Date: 20151125
  Serious: Yes (Hospitalization, Other)
  Sender: FDA-Public Use
  Company Number: GB-SEATTLE GENETICS-2015SGN01551

PATIENT

DRUGS (4)
  1. DACARBAZINE. [Suspect]
     Active Substance: DACARBAZINE
     Indication: HODGKIN^S DISEASE
     Dosage: 770 MG, UNK
     Route: 042
     Dates: start: 20150826
  2. DOXORUBICIN [Suspect]
     Active Substance: DOXORUBICIN
     Indication: HODGKIN^S DISEASE
     Dosage: 50 MG, UNK
     Route: 042
     Dates: start: 20150826
  3. BRENTUXIMAB VEDOTIN [Suspect]
     Active Substance: BRENTUXIMAB VEDOTIN
     Indication: HODGKIN^S DISEASE
     Dosage: 104.4 MG, UNK
     Route: 042
     Dates: start: 20150826
  4. VINBLASTINE [Suspect]
     Active Substance: VINBLASTINE
     Indication: HODGKIN^S DISEASE
     Dosage: 12 MG, UNK
     Route: 042
     Dates: start: 20150826

REACTIONS (10)
  - Red blood cell count decreased [None]
  - Inappropriate antidiuretic hormone secretion [None]
  - Haemoglobin decreased [None]
  - Hyponatraemia [Recovering/Resolving]
  - Hypomagnesaemia [Not Recovered/Not Resolved]
  - Febrile neutropenia [Recovered/Resolved]
  - Acute kidney injury [Recovered/Resolved]
  - Constipation [Recovered/Resolved]
  - Haematocrit decreased [None]
  - Hyperglycaemia [Not Recovered/Not Resolved]

NARRATIVE: CASE EVENT DATE: 20150915
